FAERS Safety Report 22050479 (Version 3)
Quarter: 2023Q2

REPORT INFORMATION
  Report Type: Spontaneous
  Country: CN (occurrence: CN)
  Receive Date: 20230301
  Receipt Date: 20230414
  Transmission Date: 20230722
  Serious: Yes (Death, Other)
  Sender: FDA-Public Use
  Company Number: CN-PFIZER INC-PV202300037248

PATIENT
  Age: 73 Year
  Sex: Male
  Weight: 40 kg

DRUGS (2)
  1. XALKORI [Suspect]
     Active Substance: CRIZOTINIB
     Indication: Lung adenocarcinoma
     Dosage: 0.25 G, 2X/DAY
     Route: 048
     Dates: start: 20230211, end: 20230217
  2. XALKORI [Suspect]
     Active Substance: CRIZOTINIB
     Indication: Metastases to bone

REACTIONS (4)
  - Respiratory failure [Fatal]
  - Intestinal obstruction [Fatal]
  - Electrolyte imbalance [Fatal]
  - Transaminases increased [Unknown]

NARRATIVE: CASE EVENT DATE: 20230217
